FAERS Safety Report 23682628 (Version 1)
Quarter: 2024Q1

REPORT INFORMATION
  Report Type: Spontaneous
  Country: DE (occurrence: DE)
  Receive Date: 20240328
  Receipt Date: 20240328
  Transmission Date: 20240410
  Serious: Yes (Life-Threatening, Hospitalization)
  Sender: FDA-Public Use
  Company Number: DE-PFIZER INC-202400073456

PATIENT
  Age: 88 Year
  Sex: Female

DRUGS (8)
  1. PAXLOVID [Suspect]
     Active Substance: NIRMATRELVIR\RITONAVIR
     Indication: COVID-19 treatment
     Dosage: UNK
     Route: 048
     Dates: start: 20231105, end: 20231109
  2. ATORVASTATIN [Concomitant]
     Active Substance: ATORVASTATIN
     Dosage: UNK
  3. METOPROLOL [Concomitant]
     Active Substance: METOPROLOL
  4. ALLOPURINOL [Concomitant]
     Active Substance: ALLOPURINOL
  5. RAMIPRIL [Concomitant]
     Active Substance: RAMIPRIL
  6. APIXABAN [Concomitant]
     Active Substance: APIXABAN
  7. CHOLECALCIFEROL [Concomitant]
     Active Substance: CHOLECALCIFEROL
  8. TORSEMIDE [Concomitant]
     Active Substance: TORSEMIDE
     Dosage: UNK

REACTIONS (2)
  - Pancreatitis acute [Recovered/Resolved with Sequelae]
  - Superinfection [Recovered/Resolved with Sequelae]

NARRATIVE: CASE EVENT DATE: 20231211
